FAERS Safety Report 11664552 (Version 1)
Quarter: 2015Q4

REPORT INFORMATION
  Report Type: Spontaneous
  Country: US (occurrence: None)
  Receive Date: 20151026
  Receipt Date: 20151026
  Transmission Date: 20160304
  Serious: Yes (Other)
  Sender: FDA-Public Use
  Company Number: None

PATIENT
  Age: 59 Year
  Sex: Female
  Weight: 83.92 kg

DRUGS (1)
  1. MUCINEX [Suspect]
     Active Substance: GUAIFENESIN
     Dosage: 2 PILLS 12 PER DAY MAX.
     Route: 048

REACTIONS (4)
  - Fall [None]
  - Speech disorder [None]
  - Amnesia [None]
  - Incoherent [None]

NARRATIVE: CASE EVENT DATE: 20151020
